FAERS Safety Report 5481936-X (Version None)
Quarter: 2007Q4

REPORT INFORMATION
  Report Type: 
  Country: None (occurrence: None)
  Receive Date: 20071010
  Receipt Date: 20071004
  Transmission Date: 20080405
  Serious: Yes (Hospitalization)
  Sender: FDA-Public Use
  Company Number: JP-MERCK-0707USA00193

PATIENT
  Age: 89 Year
  Sex: Female

DRUGS (7)
  1. FOSAMAX [Suspect]
     Route: 048
     Dates: start: 20070619
  2. FOSAMAX [Suspect]
     Route: 048
     Dates: start: 20070807
  3. NORVASC [Concomitant]
     Route: 048
  4. TIMOPTIC [Concomitant]
     Route: 047
  5. DIGOSIN [Concomitant]
     Route: 065
  6. TICLOPIDINE HYDROCHLORIDE [Concomitant]
     Route: 048
  7. ALFACALCIDOL [Concomitant]
     Route: 048

REACTIONS (2)
  - CHOLANGITIS [None]
  - SOMNOLENCE [None]
